FAERS Safety Report 25738559 (Version 1)
Quarter: 2025Q3

REPORT INFORMATION
  Report Type: Report from Study
  Country: EU (occurrence: EU)
  Receive Date: 20250829
  Receipt Date: 20250829
  Transmission Date: 20251021
  Serious: Yes (Other)
  Sender: TAKEDA
  Company Number: EU-INCYTE CORPORATION-2017IN011392

PATIENT
  Age: 65 Year
  Sex: Male

DRUGS (12)
  1. PONATINIB [Suspect]
     Active Substance: PONATINIB
     Indication: Chronic myeloid leukaemia
     Dosage: 45 MILLIGRAM, QD
     Dates: start: 20160220, end: 20160420
  2. PONATINIB [Suspect]
     Active Substance: PONATINIB
     Dosage: 30 MILLIGRAM, QD
     Dates: start: 20160525, end: 20161207
  3. JANUVIA [Concomitant]
     Active Substance: SITAGLIPTIN PHOSPHATE
     Indication: Product used for unknown indication
     Dosage: 50 MILLIGRAM, QD
  4. NEBIVOLOL [Concomitant]
     Active Substance: NEBIVOLOL
     Indication: Product used for unknown indication
     Dosage: 5 MILLIGRAM, QD
  5. ALLOPURINOL [Concomitant]
     Active Substance: ALLOPURINOL
     Indication: Product used for unknown indication
     Dosage: 300 MILLIGRAM, QD
  6. BUMETANIDE [Concomitant]
     Active Substance: BUMETANIDE
     Indication: Product used for unknown indication
     Dosage: 2.5 MILLIGRAM, QD
  7. REPAGLINIDE [Concomitant]
     Active Substance: REPAGLINIDE
     Indication: Product used for unknown indication
     Dosage: 2 MILLIGRAM, TID
  8. CLOPIDOGREL [Concomitant]
     Active Substance: CLOPIDOGREL BISULFATE
     Indication: Product used for unknown indication
     Dosage: 75 MILLIGRAM, QD
  9. RAMIPRIL [Concomitant]
     Active Substance: RAMIPRIL
     Indication: Product used for unknown indication
     Dosage: 10 MILLIGRAM, QD
  10. ASPIRIN [Concomitant]
     Active Substance: ASPIRIN
     Indication: Product used for unknown indication
     Dosage: 80 MILLIGRAM, QD
  11. Vasexten [Concomitant]
     Indication: Product used for unknown indication
     Dosage: 20 MILLIGRAM, QD
  12. ZOCOR [Concomitant]
     Active Substance: SIMVASTATIN
     Indication: Product used for unknown indication
     Dosage: 10 MG, QD

REACTIONS (5)
  - Clostridium difficile infection [Recovered/Resolved]
  - Rash [Recovered/Resolved]
  - Gouty arthritis [Recovered/Resolved]
  - Dyspnoea [Recovered/Resolved]
  - Oedema peripheral [Recovered/Resolved]

NARRATIVE: CASE EVENT DATE: 20160415
